FAERS Safety Report 4563778-2 (Version None)
Quarter: 2005Q1

REPORT INFORMATION
  Report Type: 
  Country: None (occurrence: None)
  Receive Date: 20050128
  Receipt Date: 20040317
  Transmission Date: 20050727
  Serious: No
  Sender: FDA-Public Use
  Company Number: US-GLAXOSMITHKLINE-A0503200A

PATIENT
  Age: 38 Year
  Sex: Female

DRUGS (2)
  1. MEPRON [Suspect]
     Indication: ILL-DEFINED DISORDER
     Dosage: 750MG TWICE PER DAY
     Route: 048
     Dates: start: 20040302
  2. ZITHROMAX [Concomitant]

REACTIONS (2)
  - RENAL PAIN [None]
  - VISUAL DISTURBANCE [None]
